FAERS Safety Report 11358767 (Version 1)
Quarter: 2015Q3

REPORT INFORMATION
  Report Type: Spontaneous
  Country: US (occurrence: None)
  Receive Date: 20150806
  Receipt Date: 20150806
  Transmission Date: 20151125
  Serious: Yes (Other)
  Sender: FDA-Public Use
  Company Number: None

PATIENT
  Age: 61 Year
  Sex: Female

DRUGS (1)
  1. IBRUTINIB [Suspect]
     Active Substance: IBRUTINIB
     Indication: HEPATITIS A
     Route: 048
     Dates: start: 20150407, end: 20150505

REACTIONS (1)
  - Hepatitis A [None]

NARRATIVE: CASE EVENT DATE: 20150616
